FAERS Safety Report 9135586 (Version 1)
Quarter: 2013Q1

REPORT INFORMATION
  Report Type: Spontaneous
  Country: US (occurrence: US)
  Receive Date: 20130304
  Receipt Date: 20130304
  Transmission Date: 20140127
  Serious: Yes (Hospitalization)
  Sender: FDA-Public Use
  Company Number: US-ENDO PHARMACEUTICALS INC.-PERC20100030

PATIENT
  Age: 57 Year
  Sex: Female
  Weight: 106.69 kg

DRUGS (5)
  1. PERCOCET [Suspect]
     Indication: PRODUCT USED FOR UNKNOWN INDICATION
     Dosage: UNK
     Route: 048
  2. VOLTAREN GEL [Suspect]
     Indication: OSTEOARTHRITIS
     Route: 061
     Dates: start: 201001
  3. PRAVASTATIN SODIUM [Suspect]
     Indication: PRODUCT USED FOR UNKNOWN INDICATION
  4. TOLTERODINE [Suspect]
     Indication: BLADDER DISORDER
  5. DIAZEPAM [Suspect]
     Indication: INSOMNIA

REACTIONS (3)
  - Blood alkaline phosphatase increased [Recovered/Resolved]
  - Hypoglycaemia [Recovered/Resolved]
  - Hepatic enzyme increased [Recovered/Resolved]
